FAERS Safety Report 15178653 (Version 3)
Quarter: 2018Q3

REPORT INFORMATION
  Report Type: Spontaneous
  Country: FR (occurrence: FR)
  Receive Date: 20180722
  Receipt Date: 20180910
  Transmission Date: 20181010
  Serious: Yes (Death, Other)
  Sender: FDA-Public Use
  Company Number: FR-MYLANLABS-2018M1055178

PATIENT
  Age: 29 Year
  Sex: Female

DRUGS (7)
  1. CYCLOPHOSPHAMIDE. [Suspect]
     Active Substance: CYCLOPHOSPHAMIDE
     Indication: OVARIAN CANCER
     Dosage: 3000 MG/M2, UNK
  2. MITOMYCIN. [Suspect]
     Active Substance: MITOMYCIN
     Indication: OVARIAN CANCER
     Dosage: 80 MG/M2, UNK
  3. FLUOROURACIL. [Suspect]
     Active Substance: FLUOROURACIL
     Indication: OVARIAN CANCER
     Dosage: 3500 MG/M2, UNK
  4. ETOPOSIDE. [Suspect]
     Active Substance: ETOPOSIDE
     Indication: OVARIAN CANCER
     Dosage: 750 MG/M2, UNK
  5. VINCRISTINE SULFATE. [Suspect]
     Active Substance: VINCRISTINE SULFATE
     Indication: OVARIAN CANCER
     Dosage: 8 MG/M2, UNK
  6. THIOTEPA. [Suspect]
     Active Substance: THIOTEPA
     Indication: OVARIAN CANCER
     Dosage: 3500 MG/M2, UNK
  7. MELPHALAN. [Suspect]
     Active Substance: MELPHALAN
     Indication: OVARIAN CANCER
     Dosage: 80 MG/M2, UNK

REACTIONS (2)
  - Acute promyelocytic leukaemia [Fatal]
  - Second primary malignancy [Fatal]
